FAERS Safety Report 18422617 (Version 2)
Quarter: 2020Q4

REPORT INFORMATION
  Report Type: Report from Study
  Country: None (occurrence: US)
  Receive Date: 20201024
  Receipt Date: 20201130
  Transmission Date: 20210114
  Serious: Yes (Hospitalization)
  Sender: FDA-Public Use
  Company Number: US-ABBVIE-20K-163-3596603-00

PATIENT
  Sex: Female

DRUGS (1)
  1. HUMIRA [Suspect]
     Active Substance: ADALIMUMAB
     Indication: CROHN^S DISEASE
     Route: 058
     Dates: start: 20200922

REACTIONS (7)
  - Gastritis [Not Recovered/Not Resolved]
  - Rash macular [Unknown]
  - Crohn^s disease [Unknown]
  - Faeces discoloured [Unknown]
  - Purpura [Unknown]
  - Scab [Unknown]
  - Malaise [Unknown]

NARRATIVE: CASE EVENT DATE: 2020
